FAERS Safety Report 9531917 (Version 3)
Quarter: 2013Q4

REPORT INFORMATION
  Report Type: Spontaneous
  Country: US (occurrence: US)
  Receive Date: 20130918
  Receipt Date: 20131119
  Transmission Date: 20140711
  Serious: Yes (Other)
  Sender: FDA-Public Use
  Company Number: US-BAYER-2013-112286

PATIENT
  Age: 32 Year
  Sex: Female
  Weight: 67.57 kg

DRUGS (1)
  1. MIRENA [Suspect]
     Indication: CONTRACEPTION
     Dosage: 20 MCG/24HR, CONT
     Route: 015
     Dates: start: 20101001, end: 20130912

REACTIONS (5)
  - Uterine perforation [None]
  - Complication of device removal [None]
  - Device breakage [None]
  - Device difficult to use [None]
  - Device difficult to use [None]
